FAERS Safety Report 20833058 (Version 1)
Quarter: 2022Q2

REPORT INFORMATION
  Report Type: Spontaneous
  Country: CN (occurrence: CN)
  Receive Date: 20220516
  Receipt Date: 20220516
  Transmission Date: 20220721
  Serious: Yes (Other)
  Sender: FDA-Public Use
  Company Number: None

PATIENT
  Age: 50 Year
  Sex: Female
  Weight: 40 kg

DRUGS (16)
  1. CYCLOPHOSPHAMIDE [Suspect]
     Active Substance: CYCLOPHOSPHAMIDE
     Indication: Breast cancer female
     Dosage: UNK, QD, 1-2 CYCLE
     Route: 041
  2. CYCLOPHOSPHAMIDE [Suspect]
     Active Substance: CYCLOPHOSPHAMIDE
     Indication: Hormone receptor positive breast cancer
     Dosage: 800 MG, QD, THIRD CYCLE
     Route: 041
     Dates: start: 20220324
  3. CYCLOPHOSPHAMIDE [Suspect]
     Active Substance: CYCLOPHOSPHAMIDE
     Indication: HER2 positive breast cancer
     Dosage: 800 MG, QD, FOURTH CYCLE
     Route: 041
     Dates: start: 20220415, end: 20220415
  4. CYCLOPHOSPHAMIDE [Suspect]
     Active Substance: CYCLOPHOSPHAMIDE
     Dosage: UNK, QD, DOSE RE-INTRODUCED
     Route: 041
  5. GLUCOSE (DEXTROSE MONOHYDRATE) [Suspect]
     Active Substance: DEXTROSE MONOHYDRATE
     Indication: Medication dilution
     Dosage: UNK UNK, QD, 1-2 CYCLE
     Route: 041
  6. GLUCOSE (DEXTROSE MONOHYDRATE) [Suspect]
     Active Substance: DEXTROSE MONOHYDRATE
     Dosage: 100 ML, QD, THIRD CYCLE
     Route: 041
     Dates: start: 20220324
  7. GLUCOSE (DEXTROSE MONOHYDRATE) [Suspect]
     Active Substance: DEXTROSE MONOHYDRATE
     Dosage: 100 ML, QD, FOURTH CYCLE
     Route: 041
     Dates: start: 20220415
  8. GLUCOSE (DEXTROSE MONOHYDRATE) [Suspect]
     Active Substance: DEXTROSE MONOHYDRATE
     Dosage: UNK UNK, QD, DOSE RE-INTRODUCED
     Route: 041
  9. SODIUM CHLORIDE [Suspect]
     Active Substance: SODIUM CHLORIDE
     Indication: Medication dilution
     Dosage: UNK, QD, 1-2 CYCLE
     Route: 041
  10. SODIUM CHLORIDE [Suspect]
     Active Substance: SODIUM CHLORIDE
     Dosage: 100 ML, QD, THIRD CYCLE
     Route: 041
     Dates: start: 20220324
  11. SODIUM CHLORIDE [Suspect]
     Active Substance: SODIUM CHLORIDE
     Dosage: 100 ML, QD, FOURTH CYCLE
     Route: 041
     Dates: start: 20220415
  12. SODIUM CHLORIDE [Suspect]
     Active Substance: SODIUM CHLORIDE
     Dosage: UNK, QD, DOSE RE-INTRODUCED
     Route: 041
  13. PIRARUBICIN HYDROCHLORIDE [Suspect]
     Active Substance: PIRARUBICIN HYDROCHLORIDE
     Indication: Breast cancer female
     Dosage: UNK UNK, QD, 1-2 CYCLE
     Route: 041
  14. PIRARUBICIN HYDROCHLORIDE [Suspect]
     Active Substance: PIRARUBICIN HYDROCHLORIDE
     Indication: Hormone receptor positive breast cancer
     Dosage: 60 MG, QD, THIRD CYCLE
     Route: 041
     Dates: start: 20220324
  15. PIRARUBICIN HYDROCHLORIDE [Suspect]
     Active Substance: PIRARUBICIN HYDROCHLORIDE
     Indication: HER2 positive breast cancer
     Dosage: 60 MG, QD, FOURTH CYCLE
     Route: 041
     Dates: start: 20220415, end: 20220415
  16. PIRARUBICIN HYDROCHLORIDE [Suspect]
     Active Substance: PIRARUBICIN HYDROCHLORIDE
     Dosage: UNK UNK, QD, DOSE RE-INTRODUCED
     Route: 041

REACTIONS (2)
  - Myelosuppression [Recovered/Resolved]
  - Myelosuppression [Unknown]

NARRATIVE: CASE EVENT DATE: 20220414
